FAERS Safety Report 9557510 (Version 1)
Quarter: 2013Q3

REPORT INFORMATION
  Report Type: Spontaneous
  Country: US (occurrence: None)
  Receive Date: 20130726
  Receipt Date: 20130726
  Transmission Date: 20140515
  Serious: Yes (Hospitalization)
  Sender: FDA-Public Use
  Company Number: UTC-030039

PATIENT
  Age: 23 Year
  Sex: Female
  Weight: 67.73 kg

DRUGS (3)
  1. REMODULIN [Suspect]
     Indication: PULMONARY ARTERIAL HYPERTENSION
     Dosage: 129.6 UG/KG (0.09 UG/KG, 1 IN 1 MIN)
     Route: 041
     Dates: start: 20120121
  2. COUMADIN (WARFARIN SODIUM) [Concomitant]
  3. LETAIRIS (AMBRISENTAN) (TABLETS) [Concomitant]

REACTIONS (1)
  - Device related infection [None]
